FAERS Safety Report 25435392 (Version 2)
Quarter: 2025Q3

REPORT INFORMATION
  Report Type: Report from Study
  Country: US (occurrence: US)
  Receive Date: 20250613
  Receipt Date: 20250707
  Transmission Date: 20251020
  Serious: Yes (Other)
  Sender: MALLINCKRODT
  Company Number: US-MALLINCKRODT-MNK202503495

PATIENT
  Sex: Female

DRUGS (1)
  1. CORTICOTROPIN [Suspect]
     Active Substance: CORTICOTROPIN
     Indication: Rheumatoid arthritis

REACTIONS (5)
  - Tooth disorder [Unknown]
  - Sinus disorder [Unknown]
  - Muscle spasms [Unknown]
  - Restless legs syndrome [Unknown]
  - Fatigue [Not Recovered/Not Resolved]
